FAERS Safety Report 12662867 (Version 1)
Quarter: 2016Q3

REPORT INFORMATION
  Report Type: Spontaneous
  Country: US (occurrence: US)
  Receive Date: 20160818
  Receipt Date: 20160818
  Transmission Date: 20161109
  Serious: Yes (Other)
  Sender: FDA-Public Use
  Company Number: US-STRIDES ARCOLAB LIMITED-2016SP003610

PATIENT

DRUGS (1)
  1. TACROLIMUS. [Suspect]
     Active Substance: TACROLIMUS
     Indication: LUNG TRANSPLANT
     Dosage: UNK
     Route: 042

REACTIONS (4)
  - Posterior reversible encephalopathy syndrome [Unknown]
  - Pyrexia [Unknown]
  - Depressed level of consciousness [Unknown]
  - Encephalopathy [Unknown]
